FAERS Safety Report 15089412 (Version 1)
Quarter: 2018Q2

REPORT INFORMATION
  Report Type: Spontaneous
  Country: IT (occurrence: IT)
  Receive Date: 20180629
  Receipt Date: 20180629
  Transmission Date: 20180711
  Serious: Yes (Other)
  Sender: FDA-Public Use
  Company Number: IT-ASTRAZENECA-2018SE82733

PATIENT
  Age: 46 Year
  Sex: Female

DRUGS (6)
  1. DOXORUBICIN [Concomitant]
     Active Substance: DOXORUBICIN
     Dosage: 30MG/M2 D1/28 FOR 6 CYCLES
  2. CARBOPLATIN. [Concomitant]
     Active Substance: CARBOPLATIN
  3. OLAPARIB. [Suspect]
     Active Substance: OLAPARIB
     Route: 048
  4. OLAPARIB. [Suspect]
     Active Substance: OLAPARIB
     Route: 048
     Dates: start: 20180306, end: 20180522
  5. OLAPARIB. [Suspect]
     Active Substance: OLAPARIB
     Route: 048
     Dates: start: 20180613
  6. OLAPARIB. [Suspect]
     Active Substance: OLAPARIB
     Route: 048
     Dates: start: 20180131

REACTIONS (6)
  - Rash maculo-papular [Unknown]
  - Obstructive airways disorder [Unknown]
  - Myalgia [Recovered/Resolved]
  - Rash pustular [Unknown]
  - Headache [Unknown]
  - Pruritus [Recovered/Resolved]
